FAERS Safety Report 6587791-9 (Version None)
Quarter: 2010Q1

REPORT INFORMATION
  Report Type: 
  Country: None (occurrence: None)
  Receive Date: 20100217
  Receipt Date: 20100217
  Transmission Date: 20100710
  Serious: Yes (Other)
  Sender: FDA-Public Use
  Company Number: None

PATIENT
  Age: 26 Year
  Sex: Male
  Weight: 72.5755 kg

DRUGS (2)
  1. METOCLOPRAMIDE HYDROCHLORIDE [Suspect]
     Indication: GASTRITIS
     Dosage: 5MG 4 TIMES PER DAY PO
     Route: 048
     Dates: start: 20080822, end: 20090822
  2. METOCLOPRAMIDE HYDROCHLORIDE [Suspect]
     Indication: OESOPHAGITIS
     Dosage: 5MG 4 TIMES PER DAY PO
     Route: 048
     Dates: start: 20080822, end: 20090822

REACTIONS (5)
  - DIZZINESS [None]
  - FATIGUE [None]
  - FREQUENT BOWEL MOVEMENTS [None]
  - PRESYNCOPE [None]
  - SOMNOLENCE [None]
